FAERS Safety Report 7310641-X (Version None)
Quarter: 2011Q1

REPORT INFORMATION
  Report Type: 
  Country: None (occurrence: None)
  Receive Date: 20110224
  Receipt Date: 20100608
  Transmission Date: 20110831
  Serious: No
  Sender: FDA-Public Use
  Company Number: US-BRISTOL-MYERS SQUIBB COMPANY-15139330

PATIENT
  Age: 83 Year
  Sex: Female

DRUGS (3)
  1. AMARYL [Suspect]
     Indication: TYPE 2 DIABETES MELLITUS
  2. METFORMIN HCL [Suspect]
  3. LANTUS [Suspect]

REACTIONS (4)
  - DIARRHOEA [None]
  - FREQUENT BOWEL MOVEMENTS [None]
  - PARAESTHESIA [None]
  - BLOOD GLUCOSE INCREASED [None]
